FAERS Safety Report 6251985-2 (Version None)
Quarter: 2009Q2

REPORT INFORMATION
  Report Type: 
  Country: None (occurrence: None)
  Receive Date: 20090630
  Receipt Date: 20050908
  Transmission Date: 20091009
  Serious: Yes (Hospitalization)
  Sender: FDA-Public Use
  Company Number: US-ROCHE-638310

PATIENT
  Sex: Male

DRUGS (15)
  1. ENFUVIRTIDE [Suspect]
     Indication: HIV INFECTION
     Route: 065
     Dates: start: 20031201, end: 20060226
  2. ENFUVIRTIDE [Suspect]
     Route: 065
     Dates: start: 20060308, end: 20060315
  3. ENFUVIRTIDE [Suspect]
     Route: 065
     Dates: start: 20060308, end: 20060315
  4. EMTRIVA [Concomitant]
     Dates: start: 20031201, end: 20050914
  5. NORVIR [Concomitant]
     Dates: start: 20031201, end: 20070807
  6. PREZISTA [Concomitant]
     Dates: start: 20031201, end: 20050101
  7. VIREAD [Concomitant]
     Dates: start: 20031201, end: 20040519
  8. ZIAGEN [Concomitant]
     Dates: start: 20031201, end: 20031202
  9. ZIAGEN [Concomitant]
     Dates: start: 20050101, end: 20060329
  10. VIDEX EC [Concomitant]
     Dates: start: 20040519, end: 20041103
  11. EPIVIR [Concomitant]
     Dates: start: 20050214, end: 20050101
  12. APTIVUS [Concomitant]
     Dates: start: 20050510, end: 20070807
  13. STROMECTOL [Concomitant]
     Dates: start: 20040331, end: 20040415
  14. CANCIDAS [Concomitant]
     Dates: start: 20040623, end: 20040701
  15. BACTRIM [Concomitant]
     Dates: end: 20040101

REACTIONS (7)
  - AGRANULOCYTOSIS [None]
  - ANAEMIA OF CHRONIC DISEASE [None]
  - CACHEXIA [None]
  - HYPERCHOLESTEROLAEMIA [None]
  - MALNUTRITION [None]
  - PANCREATITIS ACUTE [None]
  - RENAL FAILURE [None]
